FAERS Safety Report 9652468 (Version 4)
Quarter: 2014Q2

REPORT INFORMATION
  Report Type: Spontaneous
  Country: SE (occurrence: SE)
  Receive Date: 20131029
  Receipt Date: 20140411
  Transmission Date: 20141212
  Serious: Yes (Hospitalization, Disabling, Other)
  Sender: FDA-Public Use
  Company Number: SE-PFIZER INC-2013306659

PATIENT
  Age: 69 Year
  Sex: Female

DRUGS (12)
  1. LYRICA [Suspect]
     Indication: NEURALGIA
     Dosage: UNK
     Dates: start: 2008
  2. LYRICA [Suspect]
     Indication: ANXIETY
     Dosage: 75 MG, 2X/DAY
     Dates: start: 20121227, end: 20130430
  3. LYRICA [Suspect]
     Dosage: 75 MG, 1X/DAY
  4. OXYCONTIN [Suspect]
     Indication: NEURALGIA
     Dosage: UNK
     Dates: start: 2008
  5. CYMBALTA [Suspect]
     Indication: ANXIETY
     Dosage: UNK
     Dates: start: 2008
  6. CYMBALTA [Suspect]
     Indication: NEURALGIA
  7. ALVEDON [Suspect]
     Indication: NEURALGIA
     Dosage: UNK
     Dates: start: 2008
  8. DAKTACORT [Concomitant]
     Dosage: UNK
  9. HYDROCORTISON [Concomitant]
     Dosage: UNK
  10. XERODENT [Concomitant]
     Dosage: UNK
  11. PROPAVAN [Concomitant]
     Dosage: UNK
  12. STESOLID [Concomitant]
     Dosage: UNK

REACTIONS (25)
  - Fatigue [Not Recovered/Not Resolved]
  - Diplopia [Not Recovered/Not Resolved]
  - Hyperhidrosis [Not Recovered/Not Resolved]
  - Dry mouth [Not Recovered/Not Resolved]
  - Amnesia [Not Recovered/Not Resolved]
  - Tooth erosion [Not Recovered/Not Resolved]
  - Back pain [Not Recovered/Not Resolved]
  - Pain in extremity [Not Recovered/Not Resolved]
  - Groin pain [Not Recovered/Not Resolved]
  - Hearing impaired [Not Recovered/Not Resolved]
  - Decreased immune responsiveness [Not Recovered/Not Resolved]
  - Muscle twitching [Not Recovered/Not Resolved]
  - Spinal deformity [Not Recovered/Not Resolved]
  - Peripheral swelling [Unknown]
  - Weight increased [Unknown]
  - Constipation [Unknown]
  - Pruritus [Unknown]
  - Alopecia [Unknown]
  - Fungal infection [Unknown]
  - Muscular weakness [Unknown]
  - Poor peripheral circulation [Unknown]
  - Rosacea [Not Recovered/Not Resolved]
  - Fungal infection [Not Recovered/Not Resolved]
  - Tooth loss [Not Recovered/Not Resolved]
  - Drug ineffective [Unknown]
